FAERS Safety Report 6578723-8 (Version None)
Quarter: 2010Q1

REPORT INFORMATION
  Report Type: 
  Country: None (occurrence: None)
  Receive Date: 20100202
  Receipt Date: 20100118
  Transmission Date: 20100710
  Serious: Yes (Hospitalization)
  Sender: FDA-Public Use
  Company Number: 2010SP004182

PATIENT
  Age: 67 Year
  Sex: Male

DRUGS (9)
  1. REFLEX (MIRTAZAPINE /01293201/) [Suspect]
     Dosage: 30 MG; QD; PO, 45 MG; QD; PO, 15 MG; QD; PO
     Route: 048
     Dates: end: 20091113
  2. REFLEX (MIRTAZAPINE /01293201/) [Suspect]
     Dosage: 30 MG; QD; PO, 45 MG; QD; PO, 15 MG; QD; PO
     Route: 048
     Dates: start: 20091114, end: 20091119
  3. REFLEX (MIRTAZAPINE /01293201/) [Suspect]
     Dosage: 30 MG; QD; PO, 45 MG; QD; PO, 15 MG; QD; PO
     Route: 048
     Dates: start: 20091120, end: 20091120
  4. OLANZAPINE [Concomitant]
  5. MAGNESIUM OXIDE [Concomitant]
  6. SENNOSIDES A+B [Concomitant]
  7. TRIAZOLAM [Concomitant]
  8. BROTIZOLAM [Concomitant]
  9. MIANSERIN HYDROCHLORIDE [Concomitant]

REACTIONS (3)
  - ALTERED STATE OF CONSCIOUSNESS [None]
  - INAPPROPRIATE ANTIDIURETIC HORMONE SECRETION [None]
  - PYREXIA [None]
